FAERS Safety Report 9928620 (Version 1)
Quarter: 2014Q1

REPORT INFORMATION
  Report Type: Spontaneous
  Country: US (occurrence: US)
  Receive Date: 20140227
  Receipt Date: 20140227
  Transmission Date: 20141002
  Serious: Yes (Death)
  Sender: FDA-Public Use
  Company Number: US-PFIZER INC-2014056448

PATIENT
  Age: 64 Year
  Sex: Female

DRUGS (5)
  1. SUTENT [Suspect]
     Indication: RENAL NEOPLASM
     Dosage: 50 MG, UNK
  2. DEXAMETHASONE [Concomitant]
     Dosage: UNK
  3. ACETAMINOPHEN W/OXYCODONE [Concomitant]
     Dosage: UNK
  4. CALCIUM CARBONATE W/VITAMIN D NOS [Concomitant]
     Dosage: UNK
  5. FUROSEMIDE [Concomitant]

REACTIONS (1)
  - Death [Fatal]
